FAERS Safety Report 12110552 (Version 1)
Quarter: 2016Q1

REPORT INFORMATION
  Report Type: Not Available
  Country: JP (occurrence: JP)
  Receive Date: 20160224
  Receipt Date: 20160224
  Transmission Date: 20160526
  Serious: Yes (Hospitalization)
  Sender: FDA-Public Use
  Company Number: JP-ANIPHARMA-2016-JP-000002

PATIENT
  Age: 62 Year
  Sex: Male

DRUGS (3)
  1. LITHIUM CARBONATE (NON-SPECIFIC) [Suspect]
     Active Substance: LITHIUM
     Dosage: 600 MG PER DAY
  2. IMIPRAMINE [Suspect]
     Active Substance: IMIPRAMINE
     Dosage: 175 MG PER DAY
  3. METOCLOPRAMIDE. [Suspect]
     Active Substance: METOCLOPRAMIDE
     Dosage: 25 MG/DAY
     Route: 042

REACTIONS (2)
  - Neuroleptic malignant syndrome [Unknown]
  - Serotonin syndrome [Unknown]
